FAERS Safety Report 5872237-6 (Version None)
Quarter: 2008Q3

REPORT INFORMATION
  Report Type: 
  Country: None (occurrence: None)
  Receive Date: 20080905
  Receipt Date: 20080812
  Transmission Date: 20090109
  Serious: Yes (Other)
  Sender: FDA-Public Use
  Company Number: MX-ROCHE-528809

PATIENT
  Sex: Female
  Weight: 66 kg

DRUGS (2)
  1. XENICAL [Suspect]
     Indication: WEIGHT CONTROL
     Dosage: DOSAGE: DAILY
     Route: 048
     Dates: start: 20070831, end: 20071023
  2. EUTIROX [Concomitant]
     Indication: HYPOTHYROIDISM
     Dosage: DOSAGE REGIMEN: DAILY
     Route: 048
     Dates: start: 20020101

REACTIONS (1)
  - ABORTION SPONTANEOUS [None]
